FAERS Safety Report 25076221 (Version 1)
Quarter: 2025Q1

REPORT INFORMATION
  Report Type: Spontaneous
  Country: US (occurrence: US)
  Receive Date: 20250313
  Receipt Date: 20250313
  Transmission Date: 20250409
  Serious: No
  Sender: BAYER HEALTHCARE LLC
  Company Number: US-BAYER-2025A032660

PATIENT
  Sex: Male

DRUGS (1)
  1. MIRALAX [Suspect]
     Active Substance: POLYETHYLENE GLYCOL 3350
     Indication: Gastrointestinal disorder
     Dosage: EVERYDAY FOR ABOUT A MONTH
     Route: 048
     Dates: start: 2025

REACTIONS (2)
  - Diarrhoea [Recovering/Resolving]
  - Incorrect product administration duration [None]

NARRATIVE: CASE EVENT DATE: 20250306
